FAERS Safety Report 6352127 (Version 4)
Quarter: 2013Q2

REPORT INFORMATION
  Report Type: Report from Study
  Country: BE (occurrence: BE)
  Receive Date: 20070709
  Receipt Date: 20130425
  Transmission Date: 20140414
  Serious: Yes (Disabling, Other)
  Sender: FDA-Public Use
  Company Number: BE-JNJFOC-20070700285

PATIENT
  Age: 31 Year
  Sex: Female
  Weight: 74 kg

DRUGS (3)
  1. REMICADE [Suspect]
     Indication: CROHN^S DISEASE
     Route: 042
     Dates: start: 20070205
  2. REMICADE [Suspect]
     Indication: CROHN^S DISEASE
     Route: 042
     Dates: start: 20070402
  3. REMICADE [Suspect]
     Indication: CROHN^S DISEASE
     Route: 042
     Dates: start: 20061211

REACTIONS (2)
  - Osteoarthritis [Unknown]
  - Lupus-like syndrome [Unknown]
